FAERS Safety Report 10776924 (Version 1)
Quarter: 2015Q1

REPORT INFORMATION
  Report Type: Spontaneous
  Country: US (occurrence: None)
  Receive Date: 20150206
  Receipt Date: 20150206
  Transmission Date: 20150721
  Serious: No
  Sender: FDA-Public Use
  Company Number: None

PATIENT
  Age: 5 Year
  Sex: Female
  Weight: 17.69 kg

DRUGS (6)
  1. SINGULAIR [Suspect]
     Active Substance: MONTELUKAST SODIUM
     Indication: BRONCHITIS CHRONIC
     Dates: start: 20150110, end: 20150115
  2. QUERCETIN [Concomitant]
     Active Substance: QUERCETIN
  3. TURMERIC [Concomitant]
     Active Substance: TURMERIC
  4. MULTIVITAMIN [Concomitant]
     Active Substance: VITAMINS
  5. SINGULAIR [Suspect]
     Active Substance: MONTELUKAST SODIUM
     Indication: ASTHMA
     Dates: start: 20150110, end: 20150115
  6. FISH OIL [Concomitant]
     Active Substance: FISH OIL

REACTIONS (2)
  - Somnambulism [None]
  - Sleep terror [None]

NARRATIVE: CASE EVENT DATE: 20150115
